FAERS Safety Report 4845219-0 (Version None)
Quarter: 2005Q4

REPORT INFORMATION
  Report Type: 
  Country: None (occurrence: None)
  Receive Date: 20051129
  Receipt Date: 20051121
  Transmission Date: 20060501
  Serious: Yes (Hospitalization, Other)
  Sender: FDA-Public Use
  Company Number: 200510407BVD

PATIENT
  Age: 60 Year
  Sex: Male

DRUGS (3)
  1. AVELOX [Suspect]
     Indication: RESPIRATORY TRACT INFECTION
     Dosage: 400 MG, TOTAL DAILY, ORAL
     Route: 048
     Dates: start: 20050329, end: 20050403
  2. ACC 200 [Concomitant]
  3. NORVASC [Concomitant]

REACTIONS (4)
  - CONDITION AGGRAVATED [None]
  - HEART RATE INCREASED [None]
  - PARAESTHESIA [None]
  - QUADRIPLEGIA [None]
